FAERS Safety Report 25479484 (Version 1)
Quarter: 2025Q2

REPORT INFORMATION
  Report Type: Spontaneous
  Country: JP (occurrence: JP)
  Receive Date: 20250625
  Receipt Date: 20250625
  Transmission Date: 20250716
  Serious: Yes (Hospitalization, Other)
  Sender: MERCK SHARP & DOHME LLC
  Company Number: JP-009507513-2299221

PATIENT
  Age: 5 Decade
  Sex: Female

DRUGS (5)
  1. KEYTRUDA [Suspect]
     Active Substance: PEMBROLIZUMAB
     Indication: Triple negative breast cancer
     Dosage: 200MG, EVERY 3 WEEKS
     Route: 041
     Dates: start: 202502, end: 202506
  2. CARBOPLATIN [Suspect]
     Active Substance: CARBOPLATIN
     Indication: Prophylaxis
     Dosage: 5MG EVERY 3 WEEKS (AUC5)
     Route: 041
     Dates: start: 202502, end: 202505
  3. PACLITAXEL [Suspect]
     Active Substance: PACLITAXEL
     Indication: Triple negative breast cancer
     Dosage: 80MG PER SQUARE METER ONCE A WEEK
     Route: 041
     Dates: start: 202502, end: 202505
  4. DOXORUBICIN [Suspect]
     Active Substance: DOXORUBICIN
     Indication: Prophylaxis
     Dosage: 60MG EVERY 3 WEEKS.
     Route: 041
     Dates: start: 202505
  5. CYCLOPHOSPHAMIDE [Suspect]
     Active Substance: CYCLOPHOSPHAMIDE
     Indication: Triple negative breast cancer
     Dosage: 600MG PER SQUARE METER EVERY 3 WEEKS
     Route: 041
     Dates: start: 202505

REACTIONS (2)
  - Pyrexia [Not Recovered/Not Resolved]
  - Febrile neutropenia [Unknown]

NARRATIVE: CASE EVENT DATE: 20250601
